FAERS Safety Report 11052355 (Version 2)
Quarter: 2015Q2

REPORT INFORMATION
  Report Type: Spontaneous
  Country: US (occurrence: US)
  Receive Date: 20150421
  Receipt Date: 20150603
  Transmission Date: 20150821
  Serious: Yes (Hospitalization, Other)
  Sender: FDA-Public Use
  Company Number: US-EMD SERONO-7012363

PATIENT
  Age: 51 Year
  Sex: Female
  Weight: 86 kg

DRUGS (2)
  1. CYMBALTA [Concomitant]
     Active Substance: DULOXETINE HYDROCHLORIDE
     Indication: NEUROPATHY PERIPHERAL
  2. REBIF [Suspect]
     Active Substance: INTERFERON BETA-1A
     Indication: MULTIPLE SCLEROSIS
     Route: 058
     Dates: start: 20100519, end: 201502

REACTIONS (9)
  - Injection site pain [Unknown]
  - Insomnia [Unknown]
  - Feeling hot [Unknown]
  - White blood cell count decreased [Unknown]
  - Injection site abscess [Recovered/Resolved]
  - Injection site infection [Recovered/Resolved]
  - Injection site nodule [Not Recovered/Not Resolved]
  - Injection site cellulitis [Recovered/Resolved]
  - Immunodeficiency [Unknown]

NARRATIVE: CASE EVENT DATE: 201007
